FAERS Safety Report 6267225-4 (Version None)
Quarter: 2009Q3

REPORT INFORMATION
  Report Type: 
  Country: None (occurrence: None)
  Receive Date: 20090710
  Receipt Date: 20090701
  Transmission Date: 20100115
  Serious: Yes (Other)
  Sender: FDA-Public Use
  Company Number: 2009US002646

PATIENT
  Age: 49 Year
  Sex: Male

DRUGS (1)
  1. AMBISOME [Suspect]
     Indication: CANDIDIASIS
     Dosage: 3 MG/KG

REACTIONS (3)
  - GLOMERULONEPHRITIS [None]
  - NEPHROTIC SYNDROME [None]
  - RENAL IMPAIRMENT [None]
